FAERS Safety Report 6828146-9 (Version None)
Quarter: 2010Q3

REPORT INFORMATION
  Report Type: 
  Country: None (occurrence: None)
  Receive Date: 20100709
  Receipt Date: 20070130
  Transmission Date: 20110219
  Serious: No
  Sender: FDA-Public Use
  Company Number: US-PFIZER INC-2007009342

PATIENT
  Sex: Female
  Weight: 72.57 kg

DRUGS (3)
  1. CHANTIX [Suspect]
     Dates: start: 20061221, end: 20070101
  2. THYROID TAB [Concomitant]
  3. CHOLESTEROL [Concomitant]

REACTIONS (3)
  - ABDOMINAL PAIN [None]
  - FLATULENCE [None]
  - NAUSEA [None]
